FAERS Safety Report 9897890 (Version 3)
Quarter: 2014Q3

REPORT INFORMATION
  Report Type: Report from Study
  Country: US (occurrence: US)
  Receive Date: 20140214
  Receipt Date: 20140917
  Transmission Date: 20150326
  Serious: Yes (Hospitalization, Other)
  Sender: FDA-Public Use
  Company Number: US-BRISTOL-MYERS SQUIBB COMPANY-20054573

PATIENT
  Age: 58 Year
  Sex: Female
  Weight: 103.8 kg

DRUGS (1)
  1. IPILIMUMAB [Suspect]
     Active Substance: IPILIMUMAB
     Indication: SQUAMOUS CELL CARCINOMA OF THE CERVIX
     Dosage: CYCLE=21DAYS,90MIN ON DAY1?CYCLE=L2WEEKS,90MINQ12 WKS?TOTAL DOSE- 1002 MG.?LAST DOSE-02-JAN-2014.
     Route: 042
     Dates: start: 20131108

REACTIONS (3)
  - Abdominal pain [Unknown]
  - Constipation [Unknown]
  - Pulmonary oedema [Unknown]

NARRATIVE: CASE EVENT DATE: 20140113
